FAERS Safety Report 7544570-3 (Version None)
Quarter: 2011Q2

REPORT INFORMATION
  Report Type: 
  Country: None (occurrence: None)
  Receive Date: 20110614
  Receipt Date: 20110607
  Transmission Date: 20111010
  Serious: Yes (Hospitalization)
  Sender: FDA-Public Use
  Company Number: US-BRISTOL-MYERS SQUIBB COMPANY-15343064

PATIENT
  Age: 79 Year
  Sex: Male

DRUGS (4)
  1. IPILIMUMAB [Suspect]
     Indication: MALIGNANT MELANOMA
     Route: 042
     Dates: start: 20101008, end: 20101008
  2. ASPIRIN [Concomitant]
     Route: 048
  3. LAMICTAL [Concomitant]
  4. GLUCOSAMINE [Concomitant]

REACTIONS (1)
  - COLITIS [None]
